FAERS Safety Report 20591909 (Version 3)
Quarter: 2022Q2

REPORT INFORMATION
  Report Type: Spontaneous
  Country: US (occurrence: US)
  Receive Date: 20220314
  Receipt Date: 20220418
  Transmission Date: 20220720
  Serious: Yes (Death, Other)
  Sender: FDA-Public Use
  Company Number: US-PFIZER INC-202200397378

PATIENT
  Age: 98 Year
  Sex: Male
  Weight: 62 kg

DRUGS (2)
  1. RETACRIT [Suspect]
     Active Substance: EPOETIN ALFA-EPBX
     Indication: Anaemia of chronic disease
     Dosage: 20000 IU (Q2 WEEKS)
     Route: 058
     Dates: start: 20211130, end: 20220226
  2. HYDRALAZINE [Concomitant]
     Active Substance: HYDRALAZINE HYDROCHLORIDE
     Indication: Cardiac failure chronic
     Dosage: 25 MG, 3X/DAY
     Route: 048
     Dates: end: 20220226

REACTIONS (3)
  - Cardiac arrest [Fatal]
  - Asphyxia [Fatal]
  - Off label use [Unknown]

NARRATIVE: CASE EVENT DATE: 20211130
